FAERS Safety Report 6075290-2 (Version None)
Quarter: 2009Q1

REPORT INFORMATION
  Report Type: 
  Country: None (occurrence: None)
  Receive Date: 20090212
  Receipt Date: 20090206
  Transmission Date: 20090719
  Serious: Yes (Hospitalization)
  Sender: FDA-Public Use
  Company Number: PHHY2007MX00610

PATIENT
  Age: 60 Year
  Sex: Female

DRUGS (1)
  1. STALEVO 100 [Suspect]
     Indication: PARKINSON'S DISEASE
     Dosage: 4 TABLETS (100/25/200 MG)/DAY
     Route: 048
     Dates: start: 20070601

REACTIONS (4)
  - FALL [None]
  - GAIT DISTURBANCE [None]
  - JOINT INJURY [None]
  - LIMB INJURY [None]
